FAERS Safety Report 5822752-6 (Version None)
Quarter: 2008Q3

REPORT INFORMATION
  Report Type: 
  Country: None (occurrence: None)
  Receive Date: 20080725
  Receipt Date: 20070907
  Transmission Date: 20090109
  Serious: No
  Sender: FDA-Public Use
  Company Number: US-AMGEN-KDL242556

PATIENT
  Sex: Female

DRUGS (5)
  1. PROCRIT [Suspect]
     Indication: RENAL FAILURE CHRONIC
     Route: 058
     Dates: start: 20060101
  2. PHOSLO [Concomitant]
  3. IRON [Concomitant]
  4. CALCITRIOL [Concomitant]
  5. SODIUM BICARBONATE [Concomitant]

REACTIONS (3)
  - DISEASE PROGRESSION [None]
  - HAEMOGLOBIN DECREASED [None]
  - RENAL FAILURE CHRONIC [None]
